FAERS Safety Report 6163668-8 (Version None)
Quarter: 2009Q2

REPORT INFORMATION
  Report Type: 
  Country: None (occurrence: None)
  Receive Date: 20090422
  Receipt Date: 20090415
  Transmission Date: 20091009
  Serious: Yes (Death)
  Sender: FDA-Public Use
  Company Number: TR-ELI_LILLY_AND_COMPANY-TR200904004358

PATIENT
  Age: 63 Year
  Sex: Female

DRUGS (6)
  1. HUMULIN R [Suspect]
     Indication: DIABETES MELLITUS
     Dosage: UNK , UNKNOWN
     Route: 058
  2. ATOR [Concomitant]
     Indication: BLOOD CHOLESTEROL INCREASED
     Dosage: UNK, UNKNOWN
     Route: 065
  3. MONODUR [Concomitant]
     Indication: CARDIAC DISORDER
     Dosage: UNK, UNKNOWN
     Route: 065
  4. CORASPIN [Concomitant]
     Dosage: UNK, UNKNOWN
     Route: 065
  5. ISOPTIN [Concomitant]
     Indication: HYPERTENSION
     Dosage: UNK, UNKNOWN
     Route: 065
  6. LEVEMIR [Concomitant]
     Indication: DIABETES MELLITUS
     Dosage: UNK, UNKNOWN
     Route: 065

REACTIONS (1)
  - MYOCARDIAL INFARCTION [None]
